FAERS Safety Report 22160288 (Version 1)
Quarter: 2023Q1

REPORT INFORMATION
  Report Type: Spontaneous
  Country: US (occurrence: None)
  Receive Date: 20230330
  Receipt Date: 20230330
  Transmission Date: 20230418
  Serious: No
  Sender: FDA-Public Use
  Company Number: None

PATIENT
  Age: 65 Year
  Sex: Female

DRUGS (3)
  1. AMBRISENTAN [Suspect]
     Active Substance: AMBRISENTAN
     Indication: Heritable pulmonary arterial hypertension
     Dosage: 10MG QD ORAL?
     Route: 048
     Dates: start: 20220923
  2. TADALAFIL [Suspect]
     Active Substance: TADALAFIL
  3. ORENITRAM [Suspect]
     Active Substance: TREPROSTINIL

REACTIONS (2)
  - Presyncope [None]
  - Malaise [None]

NARRATIVE: CASE EVENT DATE: 20230315
